FAERS Safety Report 4976057-6 (Version None)
Quarter: 2006Q2

REPORT INFORMATION
  Report Type: 
  Country: None (occurrence: None)
  Receive Date: 20060418
  Receipt Date: 20051207
  Transmission Date: 20061013
  Serious: Yes (Hospitalization, Disabling, Other)
  Sender: FDA-Public Use
  Company Number: US-MERCK-0512USA01409

PATIENT
  Age: 64 Year
  Sex: Male
  Weight: 102 kg

DRUGS (8)
  1. VIOXX [Suspect]
     Indication: ARTHRITIS
     Route: 048
     Dates: start: 20020101, end: 20040101
  2. LIPITOR [Concomitant]
     Route: 065
  3. MSM COMPLETE [Concomitant]
     Route: 065
  4. CHONDROITIN SULFATE SODIUM [Concomitant]
     Route: 065
  5. FLEXERIL [Concomitant]
     Route: 065
  6. PRILOSEC [Concomitant]
     Route: 065
  7. ASPIRIN [Concomitant]
     Route: 065
  8. CELEBREX [Concomitant]
     Route: 065

REACTIONS (8)
  - CAROTID ARTERY STENOSIS [None]
  - DEPRESSION [None]
  - EMBOLIC CEREBRAL INFARCTION [None]
  - EMBOLIC STROKE [None]
  - NEUROGENIC BLADDER [None]
  - NEUROGENIC BOWEL [None]
  - RETINAL ARTERY OCCLUSION [None]
  - TRANSIENT ISCHAEMIC ATTACK [None]
